FAERS Safety Report 18756078 (Version 1)
Quarter: 2021Q1

REPORT INFORMATION
  Report Type: Spontaneous
  Country: US (occurrence: US)
  Receive Date: 20210116
  Receipt Date: 20210116
  Transmission Date: 20210419
  Serious: Yes (Other)
  Sender: FDA-Public Use
  Company Number: None

PATIENT
  Age: 21 Year
  Sex: Female
  Weight: 69.3 kg

DRUGS (2)
  1. CHLORHEXIDINE 0.12% RINSE [Suspect]
     Active Substance: CHLORHEXIDINE
     Indication: INFECTION PROPHYLAXIS
     Dosage: ?          OTHER ROUTE:LIQUID SYRINGE SHOT INTO MOUTH?
     Dates: start: 20200131, end: 20200229
  2. SPRINTEC [Concomitant]
     Active Substance: ETHINYL ESTRADIOL\NORGESTIMATE

REACTIONS (5)
  - Disturbance in attention [None]
  - Postoperative wound infection [None]
  - Pain [None]
  - Mastication disorder [None]
  - Insomnia [None]

NARRATIVE: CASE EVENT DATE: 20200131
